FAERS Safety Report 23040280 (Version 1)
Quarter: 2023Q4

REPORT INFORMATION
  Report Type: Spontaneous
  Country: CA (occurrence: CA)
  Receive Date: 20231006
  Receipt Date: 20231006
  Transmission Date: 20240110
  Serious: Yes (Other)
  Sender: FDA-Public Use
  Company Number: CA-PFIZER INC-202300314527

PATIENT
  Age: 83 Year
  Sex: Male

DRUGS (1)
  1. XELJANZ [Suspect]
     Active Substance: TOFACITINIB CITRATE
     Indication: Colitis ulcerative
     Dosage: 1 EVERY 2 DAYS
     Route: 048
     Dates: start: 20200303

REACTIONS (2)
  - Haemolysis [Unknown]
  - Off label use [Unknown]

NARRATIVE: CASE EVENT DATE: 20200303
